FAERS Safety Report 7111539-2 (Version None)
Quarter: 2010Q4

REPORT INFORMATION
  Report Type: 
  Country: None (occurrence: None)
  Receive Date: 20101118
  Receipt Date: 20100121
  Transmission Date: 20110411
  Serious: No
  Sender: FDA-Public Use
  Company Number: US-TEVA-221977USA

PATIENT
  Sex: Female
  Weight: 50.848 kg

DRUGS (7)
  1. ALBUTEROL SULFATE AUTOHALER [Suspect]
     Indication: BRONCHOSPASM
     Route: 055
     Dates: start: 20090601
  2. SERETIDE                           /01420901/ [Concomitant]
  3. FLUTICASONE PROPIONATE [Concomitant]
  4. LITHIUM [Concomitant]
  5. LAMOTRIGINE [Concomitant]
  6. VALACICLOVIR [Concomitant]
  7. BIRTH CONTROL PILLS [Concomitant]

REACTIONS (1)
  - MUSCLE SPASMS [None]
